FAERS Safety Report 19466169 (Version 2)
Quarter: 2021Q3

REPORT INFORMATION
  Report Type: Spontaneous
  Country: JP (occurrence: JP)
  Receive Date: 20210627
  Receipt Date: 20210707
  Transmission Date: 20211014
  Serious: Yes (Other)
  Sender: FDA-Public Use
  Company Number: NVSJ2021JP009472

PATIENT
  Age: 36 Year
  Sex: Male

DRUGS (1)
  1. GILENYA [Suspect]
     Active Substance: FINGOLIMOD HYDROCHLORIDE
     Indication: MULTIPLE SCLEROSIS
     Dosage: 0.5 MG
     Route: 048

REACTIONS (11)
  - Neck pain [Unknown]
  - Hyperreflexia [Unknown]
  - Altered state of consciousness [Unknown]
  - Cryptococcus test positive [Recovering/Resolving]
  - Nasopharyngitis [Unknown]
  - Renal impairment [Unknown]
  - Pyrexia [Unknown]
  - Headache [Unknown]
  - Lymphocyte count decreased [Unknown]
  - Nuchal rigidity [Unknown]
  - Meningitis cryptococcal [Recovering/Resolving]
